FAERS Safety Report 8138581 (Version 3)
Quarter: 2012Q4

REPORT INFORMATION
  Report Type: 
  Country: US (occurrence: US)
  Receive Date: 20110915
  Receipt Date: 20121008
  Transmission Date: 20130627
  Serious: Yes (Hospitalization)
  Sender: FDA-Public Use
  Company Number: US-ASTRAZENECA-2011SE53664

PATIENT
  Age: 68 Year
  Sex: Female

DRUGS (2)
  1. NEXIUM [Suspect]
     Dosage: BID
     Route: 048
  2. PRILOSEC [Suspect]
     Route: 048

REACTIONS (11)
  - Gastrooesophageal reflux disease [Unknown]
  - Ear discomfort [Unknown]
  - Dyspnoea [Unknown]
  - Aspiration [Unknown]
  - Throat irritation [Unknown]
  - Sleep disorder due to a general medical condition [Unknown]
  - Eructation [Unknown]
  - Flatulence [Unknown]
  - Off label use [Unknown]
  - Drug ineffective [Unknown]
  - Drug dose omission [Unknown]
